FAERS Safety Report 11004642 (Version 1)
Quarter: 2015Q2

REPORT INFORMATION
  Report Type: Report from Study
  Country: IT (occurrence: IT)
  Receive Date: 20150409
  Receipt Date: 20150409
  Transmission Date: 20150821
  Serious: Yes (Life-Threatening, Hospitalization)
  Sender: FDA-Public Use
  Company Number: IT-ABBVIE-14P-083-1268645-00

PATIENT
  Sex: Female
  Weight: 60 kg

DRUGS (9)
  1. RASAGILINE [Concomitant]
     Active Substance: RASAGILINE
     Indication: PARKINSON^S DISEASE
     Dosage: 1 MG
     Route: 048
     Dates: start: 20140709, end: 20140802
  2. CITALOPRAM HYDROCHLORIDE [Concomitant]
     Active Substance: CITALOPRAM HYDROCHLORIDE
     Indication: DEPRESSION
     Dosage: 10 MG
     Dates: start: 2011, end: 20140802
  3. DUODOPA [Suspect]
     Active Substance: CARBIDOPA\LEVODOPA
     Indication: ON AND OFF PHENOMENON
     Dosage: 2.1 ML/H BY CONTINUOUS INFUSION
     Route: 050
     Dates: start: 20140218, end: 20140701
  4. DUODOPA [Suspect]
     Active Substance: CARBIDOPA\LEVODOPA
     Indication: PARKINSON^S DISEASE
  5. QUETIAPINE FUMARATE. [Concomitant]
     Active Substance: QUETIAPINE FUMARATE
     Indication: PSYCHOTIC DISORDER
     Dosage: 25 MG
     Route: 048
     Dates: start: 20140707, end: 20140802
  6. PANTOPRAZOLE [Concomitant]
     Active Substance: PANTOPRAZOLE SODIUM
     Indication: PRODUCT USED FOR UNKNOWN INDICATION
     Dosage: 20 MG/DAY
     Dates: start: 20140707, end: 20140802
  7. TRIHEXYPHENIDYL HYDROCHLORIDE. [Concomitant]
     Active Substance: TRIHEXYPHENIDYL HYDROCHLORIDE
     Indication: PARKINSON^S DISEASE
     Dosage: TWICE DAILY
     Route: 048
     Dates: start: 20131222, end: 20140802
  8. LEVODOPA METHYL ESTER+CARBIDOPA [Concomitant]
     Indication: PARKINSON^S DISEASE
     Dosage: 50 MG/  FIVE TIMES A DAY
     Route: 048
     Dates: start: 20140728, end: 20140802
  9. CARBAMAZEPINE. [Concomitant]
     Active Substance: CARBAMAZEPINE
     Indication: DEPRESSION
     Dosage: 300 MG THREE TIMES DAILY
     Route: 048
     Dates: start: 20140707, end: 20140802

REACTIONS (5)
  - Somnolence [Unknown]
  - Suicide attempt [Recovered/Resolved]
  - Drug abuse [Unknown]
  - Medical device discomfort [Unknown]
  - Sedation [Unknown]

NARRATIVE: CASE EVENT DATE: 20140802
